FAERS Safety Report 7479441-4 (Version None)
Quarter: 2011Q2

REPORT INFORMATION
  Report Type: 
  Country: None (occurrence: None)
  Receive Date: 20110513
  Receipt Date: 20110510
  Transmission Date: 20111010
  Serious: Yes (Other)
  Sender: FDA-Public Use
  Company Number: US-PFIZER INC-2011058345

PATIENT
  Sex: Female
  Weight: 95.238 kg

DRUGS (14)
  1. LYRICA [Suspect]
     Indication: NEURALGIA
  2. VITAMIN D [Concomitant]
  3. ALBUTEROL [Concomitant]
  4. DEXILANT [Concomitant]
     Indication: GASTRIC DISORDER
     Dosage: UNK
     Route: 048
  5. PROMETHAZINE [Concomitant]
     Indication: NAUSEA
     Dosage: 25 MG, 3X/DAY
     Route: 048
  6. TRIBENZOR [Concomitant]
     Indication: BLOOD PRESSURE ABNORMAL
     Dosage: 10-40-25, MG, 3X/DAY
     Route: 048
  7. PRISTIQ [Concomitant]
     Indication: DEPRESSION
     Dosage: 100 MG, 1X/DAY
     Route: 048
  8. NORCO [Concomitant]
  9. SYNTHROID [Concomitant]
  10. VENTOLIN [Concomitant]
     Indication: ASTHMA
     Dosage: 18 MG, EVERY 6 HOURS
     Route: 048
  11. BUSPAR [Concomitant]
  12. LYRICA [Suspect]
     Indication: PROCEDURAL PAIN
     Dosage: 600 MG, UNK
     Route: 048
     Dates: start: 20090426, end: 20101201
  13. AMBIEN [Concomitant]
  14. TRAZODONE [Concomitant]

REACTIONS (1)
  - JOINT SWELLING [None]
